FAERS Safety Report 8468746-6 (Version None)
Quarter: 2012Q2

REPORT INFORMATION
  Report Type: 
  Country: None (occurrence: None)
  Receive Date: 20120626
  Receipt Date: 20120611
  Transmission Date: 20120825
  Serious: Yes (Congenital Anomaly)
  Sender: FDA-Public Use
  Company Number: FR-ROCHE-497078

PATIENT

DRUGS (5)
  1. MYCOPHENOLATE MOFETIL [Suspect]
     Indication: LUPUS NEPHRITIS
     Dosage: MAINTENANCE THERAPY
  2. PERINDOPRIL ERBUMINE [Suspect]
     Indication: PRODUCT USED FOR UNKNOWN INDICATION
  3. PREDNISONE [Concomitant]
  4. CYCLOPHOSPHAMIDE [Concomitant]
     Indication: LUPUS NEPHRITIS
     Dosage: TWO SIX MONTH COURSES (IN 2003 AND 2005).
     Dates: start: 20030101, end: 20050101
  5. HYDROXYCHLOROQUINE SULFATE [Concomitant]

REACTIONS (15)
  - CONGENITAL ANOMALY [None]
  - HYPERTELORISM OF ORBIT [None]
  - MICROSTOMIA [None]
  - MICROGNATHIA [None]
  - ANOTIA [None]
  - RETROGNATHIA [None]
  - ANOPHTHALMOS [None]
  - MICROGLOSSIA [None]
  - SKIN HYPOPLASIA [None]
  - DYSMORPHISM [None]
  - RENAL HYPOPLASIA [None]
  - POLYDACTYLY [None]
  - ABORTION INDUCED [None]
  - EXTERNAL AUDITORY CANAL ATRESIA [None]
  - FALLOT'S TETRALOGY [None]
